FAERS Safety Report 14079400 (Version 3)
Quarter: 2017Q4

REPORT INFORMATION
  Report Type: Spontaneous
  Country: US (occurrence: US)
  Receive Date: 20171012
  Receipt Date: 20171219
  Transmission Date: 20180321
  Serious: No
  Sender: FDA-Public Use
  Company Number: US-GLAXOSMITHKLINE-US2017153393

PATIENT
  Age: 44 Year
  Sex: Female
  Weight: 68.27 kg

DRUGS (4)
  1. SUMATRIPTAN (SUMATRIPTAN SUCCINATE) SOLUTION FOR INJECTION IN PRE-FILL [Suspect]
     Active Substance: SUMATRIPTAN
     Indication: MIGRAINE
     Dosage: 4 MG, PRN
  2. BOTOX [Concomitant]
     Active Substance: ONABOTULINUMTOXINA
  3. SUMATRIPTAN (SUMATRIPTAN SUCCINATE) TABLET [Concomitant]
     Active Substance: SUMATRIPTAN
     Indication: MIGRAINE
     Dosage: UNK
     Route: 048
  4. SUMATRIPTAN (SUMATRIPTAN SUCCINATE) SOLUTION FOR INJECTION IN PRE-FILL [Suspect]
     Active Substance: SUMATRIPTAN
     Dosage: UNK

REACTIONS (4)
  - Drug dose omission [Unknown]
  - Migraine [Recovered/Resolved]
  - Emergency care [Unknown]
  - Product quality issue [Unknown]

NARRATIVE: CASE EVENT DATE: 20170908
